FAERS Safety Report 10111439 (Version 1)
Quarter: 2014Q2

REPORT INFORMATION
  Report Type: Spontaneous
  Country: DE (occurrence: DE)
  Receive Date: 20140425
  Receipt Date: 20140425
  Transmission Date: 20141212
  Serious: Yes (Congenital Anomaly)
  Sender: FDA-Public Use
  Company Number: GXKR2014DE001669

PATIENT
  Sex: 0

DRUGS (4)
  1. CITALOPRAM [Suspect]
     Indication: PANIC DISORDER
     Dosage: 20 [MG/D ]/ IN WEEK 28+3 DAYS REDUCTION TO 10 MG/D
     Route: 064
     Dates: start: 20110829, end: 20120430
  2. INFLUENZA VIRUS VACC SEASONAL INN [Suspect]
     Indication: IMMUNISATION
     Route: 064
     Dates: start: 20111227, end: 20111227
  3. L-THYROXINE//LEVOTHYROXINE [Concomitant]
     Indication: HYPOTHYROIDISM
     Dosage: 0. - 40.6 GESTATIONAL WEEK: 75 [?G/D ]
     Route: 064
     Dates: start: 20110829, end: 20120610
  4. FOLIC ACID [Concomitant]
     Indication: PROPHYLAXIS OF NEURAL TUBE DEFECT
     Dosage: PRECONCEPTIONAL AND 0. - 40.6 GESTATIONAL WEEK
     Route: 064

REACTIONS (1)
  - Deafness [Unknown]
